FAERS Safety Report 14844276 (Version 2)
Quarter: 2025Q3

REPORT INFORMATION
  Report Type: Spontaneous
  Country: KW (occurrence: KW)
  Receive Date: 20180503
  Receipt Date: 20250814
  Transmission Date: 20251020
  Serious: Yes (Other)
  Sender: MERCK SHARP & DOHME LLC
  Company Number: KW-009507513-1804KWT010602

PATIENT
  Age: 34 Year
  Sex: Female

DRUGS (3)
  1. CASPOFUNGIN ACETATE [Suspect]
     Active Substance: CASPOFUNGIN ACETATE
     Indication: General physical health deterioration
  2. MEROPENEM [Concomitant]
     Active Substance: MEROPENEM
     Indication: Sepsis
  3. LINEZOLID [Concomitant]
     Active Substance: LINEZOLID
     Indication: Sepsis

REACTIONS (1)
  - Pathogen resistance [Unknown]
